FAERS Safety Report 12098888 (Version 1)
Quarter: 2016Q1

REPORT INFORMATION
  Report Type: Spontaneous
  Country: US (occurrence: US)
  Receive Date: 20160222
  Receipt Date: 20160222
  Transmission Date: 20160526
  Serious: No
  Sender: FDA-Public Use
  Company Number: US-TEVA-592215USA

PATIENT
  Age: 75 Year
  Sex: Female

DRUGS (1)
  1. ALENDRONIC ACID [Suspect]
     Active Substance: ALENDRONIC ACID
     Indication: OSTEOPOROSIS
     Dosage: 10 MILLIGRAM DAILY;
     Route: 048
     Dates: start: 20150605

REACTIONS (9)
  - Oral discomfort [Unknown]
  - Product taste abnormal [Unknown]
  - Nausea [Unknown]
  - Dysgeusia [Unknown]
  - Ageusia [Unknown]
  - Fluid intake reduced [Unknown]
  - Drug dose omission [Unknown]
  - Weight decreased [Unknown]
  - Hypophagia [Unknown]

NARRATIVE: CASE EVENT DATE: 20150828
